FAERS Safety Report 11249076 (Version 1)
Quarter: 2015Q3

REPORT INFORMATION
  Report Type: Spontaneous
  Country: US (occurrence: US)
  Receive Date: 20150708
  Receipt Date: 20150708
  Transmission Date: 20151125
  Serious: No
  Sender: FDA-Public Use
  Company Number: US-ELI_LILLY_AND_COMPANY-US200806003381

PATIENT
  Age: 63 Year
  Sex: Female

DRUGS (14)
  1. PROCHLORPERAZINE. [Concomitant]
     Active Substance: PROCHLORPERAZINE
     Indication: NAUSEA
  2. FLUCONAZOLE. [Concomitant]
     Active Substance: FLUCONAZOLE
  3. OXYCODONE [Concomitant]
     Active Substance: OXYCODONE
     Indication: PAIN
  4. CALCIUM CITRATE WITH VITAMIN D [Concomitant]
     Active Substance: CALCIUM CITRATE\VITAMIN D
  5. FOLIC ACID. [Concomitant]
     Active Substance: FOLIC ACID
  6. ZOLPIDEM [Concomitant]
     Active Substance: ZOLPIDEM\ZOLPIDEM TARTRATE
     Indication: SLEEP DISORDER
  7. DIOVAN /01319601/ [Concomitant]
     Indication: BLOOD PRESSURE MEASUREMENT
  8. ALIMTA [Suspect]
     Active Substance: PEMETREXED DISODIUM
     Indication: NON-SMALL CELL LUNG CANCER
     Dosage: UNK, UNK
     Route: 042
     Dates: start: 20080604, end: 20080722
  9. IPRATROPIUM BROMIDE W/SALBUTAMOL [Concomitant]
     Route: 055
  10. TRICOR [Concomitant]
     Active Substance: FENOFIBRATE
  11. VITAMIN B12 [Concomitant]
     Active Substance: CYANOCOBALAMIN
     Route: 058
  12. FLOVENT [Concomitant]
     Active Substance: FLUTICASONE PROPIONATE
  13. GLUCOSE + CHONDROITIN [Concomitant]
  14. ASA [Concomitant]
     Active Substance: ASPIRIN
     Dosage: 81 MG, DAILY (1/D)

REACTIONS (2)
  - Pain in extremity [Not Recovered/Not Resolved]
  - Oedema peripheral [Not Recovered/Not Resolved]

NARRATIVE: CASE EVENT DATE: 20080604
